FAERS Safety Report 13332553 (Version 1)
Quarter: 2017Q1

REPORT INFORMATION
  Report Type: Spontaneous
  Country: JP (occurrence: JP)
  Receive Date: 20170313
  Receipt Date: 20170313
  Transmission Date: 20170428
  Serious: Yes (Other)
  Sender: FDA-Public Use
  Company Number: ALJP2017JP000619

PATIENT

DRUGS (3)
  1. NEVANAC [Suspect]
     Active Substance: NEPAFENAC
     Indication: INFECTION PROPHYLAXIS
     Dosage: 1 GTT, TID
     Route: 047
     Dates: start: 20170202, end: 20170203
  2. TARIVID [Concomitant]
     Active Substance: OFLOXACIN
     Indication: INFECTION PROPHYLAXIS
     Dosage: UNK
     Route: 047
  3. RINDERON V [Concomitant]
     Active Substance: BETAMETHASONE VALERATE
     Indication: INFECTION PROPHYLAXIS
     Dosage: UNK
     Route: 047
     Dates: start: 20170202, end: 20170203

REACTIONS (2)
  - Corneal disorder [Recovered/Resolved]
  - Eye pain [Unknown]

NARRATIVE: CASE EVENT DATE: 20170203
